FAERS Safety Report 10385903 (Version 3)
Quarter: 2015Q3

REPORT INFORMATION
  Report Type: Spontaneous
  Country: US (occurrence: US)
  Receive Date: 20140814
  Receipt Date: 20150814
  Transmission Date: 20151125
  Serious: No
  Sender: FDA-Public Use
  Company Number: US-GALDERMA-US14001450

PATIENT
  Age: 18 Year
  Sex: Female

DRUGS (4)
  1. DIFFERIN [Suspect]
     Active Substance: ADAPALENE
     Indication: KERATOSIS PILARIS
  2. DIFFERIN [Suspect]
     Active Substance: ADAPALENE
     Indication: RASH PAPULAR
     Dosage: 0.3%
     Route: 061
     Dates: start: 201403, end: 20140404
  3. CLEANSER [Concomitant]
     Indication: THERAPEUTIC SKIN CARE TOPICAL
     Route: 061
  4. EUCERIN MOISTURIZER [Concomitant]
     Indication: DRY SKIN PROPHYLAXIS
     Route: 061

REACTIONS (3)
  - Dry skin [Recovered/Resolved]
  - Product use issue [Recovered/Resolved]
  - Skin exfoliation [Recovered/Resolved]

NARRATIVE: CASE EVENT DATE: 201403
